FAERS Safety Report 17292986 (Version 4)
Quarter: 2021Q1

REPORT INFORMATION
  Report Type: Spontaneous
  Country: US (occurrence: US)
  Receive Date: 20200121
  Receipt Date: 20210129
  Transmission Date: 20210419
  Serious: No
  Sender: FDA-Public Use
  Company Number: US-PFIZER INC-2018478680

PATIENT
  Age: 55 Year
  Sex: Female
  Weight: 128.8 kg

DRUGS (2)
  1. RELPAX [Suspect]
     Active Substance: ELETRIPTAN HYDROBROMIDE
     Indication: HEADACHE
  2. RELPAX [Suspect]
     Active Substance: ELETRIPTAN HYDROBROMIDE
     Indication: MIGRAINE WITHOUT AURA
     Dosage: 40 MG (1 TAB AT ONSET OF MIGRAINE/HA, MAY REPEAT 1 AS NEEDED PRN; MAX 2 TABS PER 24)
     Route: 048

REACTIONS (4)
  - Illness [Unknown]
  - Hypoacusis [Unknown]
  - White blood cell count increased [Unknown]
  - Visual impairment [Unknown]
